FAERS Safety Report 7872057-7 (Version None)
Quarter: 2011Q4

REPORT INFORMATION
  Report Type: 
  Country: None (occurrence: None)
  Receive Date: 20111029
  Receipt Date: 20110314
  Transmission Date: 20120403
  Serious: No
  Sender: FDA-Public Use
  Company Number: US-AMGEN-USASP2011014021

PATIENT
  Age: 39 Year
  Sex: Female

DRUGS (1)
  1. ENBREL [Suspect]
     Indication: PSORIATIC ARTHROPATHY
     Dosage: 50 MG, QWK
     Dates: start: 20060301, end: 20101201

REACTIONS (7)
  - JOINT STIFFNESS [None]
  - MENORRHAGIA [None]
  - ARTHRALGIA [None]
  - TOOTH ABSCESS [None]
  - DEHYDRATION [None]
  - WEIGHT INCREASED [None]
  - TOOTHACHE [None]
